FAERS Safety Report 10722463 (Version 1)
Quarter: 2015Q1

REPORT INFORMATION
  Report Type: Spontaneous
  Country: US (occurrence: US)
  Receive Date: 20150119
  Receipt Date: 20150119
  Transmission Date: 20150721
  Serious: No
  Sender: FDA-Public Use
  Company Number: US-BAUSCH-BL-2014-009563

PATIENT
  Sex: Female

DRUGS (1)
  1. LOTEMAX [Suspect]
     Active Substance: LOTEPREDNOL ETABONATE
     Indication: CORNEAL TRANSPLANT
     Dosage: 2 DROPS IN BOTH EYES DAILY
     Route: 047

REACTIONS (2)
  - Eye discharge [Not Recovered/Not Resolved]
  - Alopecia [Not Recovered/Not Resolved]
